FAERS Safety Report 24616421 (Version 1)
Quarter: 2024Q4

REPORT INFORMATION
  Report Type: Spontaneous
  Country: DE (occurrence: DE)
  Receive Date: 20241114
  Receipt Date: 20241114
  Transmission Date: 20250114
  Serious: Yes (Other)
  Sender: BEIGENE
  Company Number: DE-BEIGENE-BGN-2024-017976

PATIENT

DRUGS (1)
  1. BRUKINSA [Suspect]
     Active Substance: ZANUBRUTINIB
     Indication: Product used for unknown indication
     Dosage: 8 MILLIGRAM

REACTIONS (2)
  - Chest injury [Unknown]
  - Musculoskeletal chest pain [Unknown]
